FAERS Safety Report 15047677 (Version 2)
Quarter: 2018Q3

REPORT INFORMATION
  Report Type: Spontaneous
  Country: US (occurrence: US)
  Receive Date: 20180621
  Receipt Date: 20180808
  Transmission Date: 20181010
  Serious: No
  Sender: FDA-Public Use
  Company Number: US-VIFOR (INTERNATIONAL) INC.-VIT-2018-06249

PATIENT
  Sex: Male

DRUGS (27)
  1. KIONEX [Concomitant]
     Active Substance: SODIUM POLYSTYRENE SULFONATE
  2. SENNA [Concomitant]
     Active Substance: SENNA LEAF\SENNOSIDES\SENNOSIDES A AND B
  3. AQUAPHOR ADVANCED THERAPY [Concomitant]
  4. FEXOFENADINE HYDROCHLORIDE. [Concomitant]
     Active Substance: FEXOFENADINE HYDROCHLORIDE
  5. MIRTAZAPINE. [Concomitant]
     Active Substance: MIRTAZAPINE
  6. METOPROLOL TARTRATE. [Concomitant]
     Active Substance: METOPROLOL TARTRATE
  7. COLECALCIFEROL [Concomitant]
     Active Substance: CHOLECALCIFEROL
  8. AMLODIPINE BESILATE [Concomitant]
     Active Substance: AMLODIPINE BESYLATE
  9. ACETYLSALICYLIC ACID [Concomitant]
     Active Substance: ASPIRIN
  10. CALCIUM CITRATE [Concomitant]
     Active Substance: CALCIUM CITRATE
  11. VELTASSA [Suspect]
     Active Substance: PATIROMER
     Indication: HYPERKALAEMIA
     Route: 048
     Dates: start: 20180615
  12. BACLOFEN. [Concomitant]
     Active Substance: BACLOFEN
  13. ELIQUIS [Concomitant]
     Active Substance: APIXABAN
  14. FLEET ENEMA [Concomitant]
     Active Substance: SODIUM PHOSPHATE, DIBASIC\SODIUM PHOSPHATE, MONOBASIC
  15. PANTOPRAZOLE SODIUM SESQUIHYDRATE [Concomitant]
     Active Substance: PANTOPRAZOLE SODIUM
  16. SERTRALINE HYDROCHLORIDE. [Concomitant]
     Active Substance: SERTRALINE HYDROCHLORIDE
  17. FERROUS SULFATE. [Concomitant]
     Active Substance: FERROUS SULFATE
  18. FOLIC ACID. [Concomitant]
     Active Substance: FOLIC ACID
  19. PARACETAMOL [Concomitant]
     Active Substance: ACETAMINOPHEN
  20. ERGOCALCIFEROL. [Concomitant]
     Active Substance: ERGOCALCIFEROL
  21. THERA?M [Concomitant]
  22. CYANOCOBALAMIN. [Concomitant]
     Active Substance: CYANOCOBALAMIN
  23. DIPHENHYDRAMINE HYDROCHLORIDE. [Concomitant]
     Active Substance: DIPHENHYDRAMINE HYDROCHLORIDE
  24. FUROSEMIDE. [Concomitant]
     Active Substance: FUROSEMIDE
  25. METHENAMINE HIPPURATE. [Concomitant]
     Active Substance: METHENAMINE HIPPURATE
  26. SIMVASTATIN. [Concomitant]
     Active Substance: SIMVASTATIN
  27. ULORIC [Concomitant]
     Active Substance: FEBUXOSTAT

REACTIONS (2)
  - Blood potassium decreased [Unknown]
  - Constipation [Not Recovered/Not Resolved]

NARRATIVE: CASE EVENT DATE: 2018
